FAERS Safety Report 8209148-7 (Version None)
Quarter: 2012Q1

REPORT INFORMATION
  Report Type: 
  Country: None (occurrence: None)
  Receive Date: 20120314
  Receipt Date: 20120305
  Transmission Date: 20120608
  Serious: Yes (Hospitalization, Other)
  Sender: FDA-Public Use
  Company Number: US-BAYER-201033744NA

PATIENT
  Age: 14 Year
  Sex: Female
  Weight: 112.93 kg

DRUGS (2)
  1. YAZ [Suspect]
     Dosage: UNK
     Dates: start: 20030101, end: 20050728
  2. YASMIN [Suspect]
     Dosage: UNK UNK, UNK
     Route: 048
     Dates: start: 20030101, end: 20050728

REACTIONS (3)
  - PULMONARY EMBOLISM [None]
  - LUNG DISORDER [None]
  - DEEP VEIN THROMBOSIS [None]
